FAERS Safety Report 6808089-7 (Version None)
Quarter: 2010Q2

REPORT INFORMATION
  Report Type: 
  Country: None (occurrence: None)
  Receive Date: 20100629
  Receipt Date: 20090214
  Transmission Date: 20101027
  Serious: No
  Sender: FDA-Public Use
  Company Number: US-PFIZER INC-2009171581

PATIENT
  Sex: Male

DRUGS (2)
  1. ZYVOX [Suspect]
     Indication: SKIN INFECTION
  2. ZYVOX [Suspect]
     Indication: SOFT TISSUE INFECTION

REACTIONS (2)
  - OROPHARYNGEAL PAIN [None]
  - PRURITUS [None]
